FAERS Safety Report 9503877 (Version 1)
Quarter: 2013Q3

REPORT INFORMATION
  Report Type: Spontaneous
  Country: US (occurrence: None)
  Receive Date: 20130905
  Receipt Date: 20130905
  Transmission Date: 20140515
  Serious: Yes (Life-Threatening)
  Sender: FDA-Public Use
  Company Number: None

PATIENT
  Age: 66 Year
  Sex: Female
  Weight: 79.38 kg

DRUGS (1)
  1. CHANTIX [Suspect]
     Indication: SMOKING CESSATION THERAPY
     Dosage: 1 TABLET  TWICE DAILY  TAKEN BY MOUTH
     Route: 048
     Dates: start: 20130704, end: 20130712

REACTIONS (6)
  - Nausea [None]
  - Vomiting [None]
  - Dyspnoea [None]
  - Dizziness [None]
  - Dyspnoea [None]
  - Thinking abnormal [None]
